FAERS Safety Report 11426538 (Version 1)
Quarter: 2015Q3

REPORT INFORMATION
  Report Type: Spontaneous
  Country: US (occurrence: US)
  Receive Date: 20150821
  Receipt Date: 20150821
  Transmission Date: 20151125
  Serious: No
  Sender: FDA-Public Use
  Company Number: US-ELI_LILLY_AND_COMPANY-US201305009442

PATIENT
  Sex: Female

DRUGS (2)
  1. ADCIRCA [Suspect]
     Active Substance: TADALAFIL
     Indication: PULMONARY ARTERIAL HYPERTENSION
     Dosage: 1 DF, QD
     Dates: start: 20130514, end: 20130514
  2. ADCIRCA [Suspect]
     Active Substance: TADALAFIL
     Dosage: 1 DF, BID
     Dates: start: 20130515, end: 20130516

REACTIONS (1)
  - Muscle spasms [Recovered/Resolved]
